FAERS Safety Report 8345593-7 (Version None)
Quarter: 2012Q2

REPORT INFORMATION
  Report Type: 
  Country: None (occurrence: None)
  Receive Date: 20120508
  Receipt Date: 20120425
  Transmission Date: 20120825
  Serious: Yes (Hospitalization, Other)
  Sender: FDA-Public Use
  Company Number: US-ROCHE-797039

PATIENT
  Sex: Female
  Weight: 94.3 kg

DRUGS (18)
  1. NEXIUM [Concomitant]
  2. CALCIUM [Concomitant]
     Dosage: 1 UNIT
  3. ATIVAN [Concomitant]
  4. VEMURAFENIB [Suspect]
     Indication: METASTATIC MALIGNANT MELANOMA
     Dosage: DATE OF LAST DOSE PRIOR TO SAE: 20/MAR/2012
     Route: 048
  5. CYMBALTA [Concomitant]
  6. LOSARTAN POTASSIUM [Concomitant]
  7. VERAPAMIL [Concomitant]
  8. FISH OIL [Concomitant]
     Dosage: 1 UNIT
  9. AMLODIPINE [Concomitant]
  10. LASIX [Concomitant]
  11. ARAVA [Concomitant]
  12. VITAMIN C [Concomitant]
     Dosage: 1 UNIT
  13. MULTI-VITAMIN [Concomitant]
     Dosage: 1
     Dates: start: 20000615
  14. NORCO [Concomitant]
     Dosage: 5/75 MG DAILY
  15. TOPAMAX [Concomitant]
  16. CLONAZEPAM [Concomitant]
     Dates: start: 19850615
  17. POTASSIUM SODIUM HYDROGEN CITRATE [Concomitant]
     Dosage: FREQUENCY: 1
  18. AMITRIPTYLINE HCL [Concomitant]
     Dates: start: 19850615

REACTIONS (4)
  - BRONCHITIS [None]
  - PANCYTOPENIA [None]
  - CARDIAC FAILURE ACUTE [None]
  - PNEUMONIA [None]
